FAERS Safety Report 24419680 (Version 5)
Quarter: 2025Q3

REPORT INFORMATION
  Report Type: Spontaneous
  Country: CA (occurrence: CA)
  Receive Date: 20241010
  Receipt Date: 20250906
  Transmission Date: 20251021
  Serious: Yes (Other)
  Sender: ACCORD
  Company Number: None

PATIENT
  Age: 53 Year
  Sex: Male

DRUGS (211)
  1. ESCITALOPRAM [Suspect]
     Active Substance: ESCITALOPRAM OXALATE
     Indication: Product used for unknown indication
  2. ROSUVASTATIN CALCIUM [Suspect]
     Active Substance: ROSUVASTATIN CALCIUM
     Indication: Blood cholesterol increased
     Route: 058
  3. OMEPRAZOLE [Suspect]
     Active Substance: OMEPRAZOLE
     Indication: Gastritis
  4. CANDESARTAN [Suspect]
     Active Substance: CANDESARTAN
     Indication: Colitis ulcerative
     Route: 048
  5. GABAPENTIN [Suspect]
     Active Substance: GABAPENTIN
     Indication: Product used for unknown indication
  6. METFORMIN [Suspect]
     Active Substance: METFORMIN HYDROCHLORIDE
     Indication: Product used for unknown indication
  7. OXYCODONE HYDROCHLORIDE [Suspect]
     Active Substance: OXYCODONE HYDROCHLORIDE
     Indication: Product used for unknown indication
  8. WARFARIN SODIUM [Suspect]
     Active Substance: WARFARIN SODIUM
     Indication: Deep vein thrombosis
     Route: 048
  9. TOZINAMERAN [Suspect]
     Active Substance: TOZINAMERAN
     Indication: Product used for unknown indication
  10. PREDNISONE [Suspect]
     Active Substance: PREDNISONE
     Indication: Colitis ulcerative
  11. SULFASALAZINE [Suspect]
     Active Substance: SULFASALAZINE
     Indication: Colitis ulcerative
     Route: 048
  12. ALBENDAZOLE [Suspect]
     Active Substance: ALBENDAZOLE
     Indication: Deep vein thrombosis
     Route: 042
  13. VITAMIN D3 [Suspect]
     Active Substance: CHOLECALCIFEROL
     Indication: Product used for unknown indication
  14. ADALIMUMAB [Suspect]
     Active Substance: ADALIMUMAB
     Indication: Crohn^s disease
     Route: 058
  15. ASPIRIN [Suspect]
     Active Substance: ASPIRIN
     Indication: Ill-defined disorder
     Route: 065
  16. BUDESONIDE [Suspect]
     Active Substance: BUDESONIDE
     Indication: Colitis ulcerative
     Route: 048
  17. PARA-AMINOSALICYLIC ACID [Suspect]
     Active Substance: AMINOSALICYLIC ACID
     Indication: Product used for unknown indication
     Route: 048
  18. ASACOL [Suspect]
     Active Substance: MESALAMINE
     Indication: Colitis ulcerative
  19. COVID-19 VACCINE NOS [Suspect]
     Active Substance: COVID-19 VACCINE
     Indication: COVID-19 immunisation
     Route: 065
  20. CORTIFOAM [Suspect]
     Active Substance: HYDROCORTISONE ACETATE
     Indication: Deep vein thrombosis
     Route: 048
  21. HYDROCORTISONE [Suspect]
     Active Substance: HYDROCORTISONE
     Indication: Colitis ulcerative
     Route: 048
  22. FUROSEMIDE [Suspect]
     Active Substance: FUROSEMIDE
     Indication: Product used for unknown indication
  23. DAPAGLIFLOZIN [Suspect]
     Active Substance: DAPAGLIFLOZIN
     Indication: Ill-defined disorder
  24. CORTISONE [Suspect]
     Active Substance: CORTISONE
     Indication: Crohn^s disease
     Route: 048
  25. ESOMEPRAZOLE [Suspect]
     Active Substance: ESOMEPRAZOLE
     Indication: Gastritis
  26. EPINEPHRINE HYDROCHLORIDE [Suspect]
     Active Substance: EPINEPHRINE HYDROCHLORIDE
     Indication: Product used for unknown indication
  27. HYDROCORTISONE [Suspect]
     Active Substance: HYDROCORTISONE
     Indication: Colitis ulcerative
  28. LEVOTHYROXINE SODIUM [Suspect]
     Active Substance: LEVOTHYROXINE SODIUM
     Indication: Product used for unknown indication
  29. MEBEVERINE HYDROCHLORIDE [Suspect]
     Active Substance: MEBEVERINE HYDROCHLORIDE
     Indication: Product used for unknown indication
  30. VEDOLIZUMAB [Suspect]
     Active Substance: VEDOLIZUMAB
     Indication: Deep vein thrombosis
     Route: 042
  31. INFLIXIMAB [Suspect]
     Active Substance: INFLIXIMAB
     Indication: Colitis ulcerative
     Route: 042
  32. LISDEXAMFETAMINE DIMESYLATE [Suspect]
     Active Substance: LISDEXAMFETAMINE DIMESYLATE
     Indication: Product used for unknown indication
     Route: 065
  33. MESALAMINE [Suspect]
     Active Substance: MESALAMINE
     Indication: Colitis ulcerative
  34. MESALAMINE [Suspect]
     Active Substance: MESALAMINE
     Indication: Colitis ulcerative
     Route: 048
  35. FELODIPINE [Suspect]
     Active Substance: FELODIPINE
     Indication: Hypertension
     Route: 048
  36. ACETAMINOPHEN [Suspect]
     Active Substance: ACETAMINOPHEN
     Indication: Ill-defined disorder
  37. HUMIRA [Suspect]
     Active Substance: ADALIMUMAB
     Indication: Colitis ulcerative
  38. COMIRNATY NOS [Suspect]
     Active Substance: COVID-19 VACCINE
     Indication: Product used for unknown indication
  39. DESOXIMETASONE [Suspect]
     Active Substance: DESOXIMETASONE
     Indication: Crohn^s disease
  40. LISDEXAMFETAMINE DIMESYLATE [Suspect]
     Active Substance: LISDEXAMFETAMINE DIMESYLATE
     Indication: Attention deficit hyperactivity disorder
  41. CHOLECALCIFEROL [Suspect]
     Active Substance: CHOLECALCIFEROL
     Indication: Product used for unknown indication
  42. MESALAMINE [Suspect]
     Active Substance: MESALAMINE
     Indication: Product used for unknown indication
  43. ASPIRIN [Suspect]
     Active Substance: ASPIRIN
     Indication: Product used for unknown indication
  44. MEBEVERINE HYDROCHLORIDE [Suspect]
     Active Substance: MEBEVERINE HYDROCHLORIDE
     Indication: Product used for unknown indication
  45. REMICADE [Suspect]
     Active Substance: INFLIXIMAB
     Indication: Colitis ulcerative
  46. CRESTOR [Suspect]
     Active Substance: ROSUVASTATIN CALCIUM
     Indication: Ill-defined disorder
  47. LEVOTHYROXINE [Suspect]
     Active Substance: LEVOTHYROXINE
     Indication: Product used for unknown indication
  48. PULMICORT TURBUHALER [Suspect]
     Active Substance: BUDESONIDE
     Indication: Colitis ulcerative
     Route: 048
  49. PRAVASTATIN [Concomitant]
     Active Substance: PRAVASTATIN
     Indication: Product used for unknown indication
  50. RAMIPRIL [Concomitant]
     Active Substance: RAMIPRIL
     Indication: Ill-defined disorder
  51. PARAFFIN [Concomitant]
     Active Substance: PARAFFIN
     Indication: Product used for unknown indication
  52. RIVAROXABAN [Concomitant]
     Active Substance: RIVAROXABAN
     Indication: Product used for unknown indication
     Route: 065
  53. TAMSULOSIN HYDROCHLORIDE [Concomitant]
     Active Substance: TAMSULOSIN HYDROCHLORIDE
     Indication: Ill-defined disorder
     Route: 065
  54. TETRAHYDROZOLINE HYDROCHLORIDE [Concomitant]
     Active Substance: TETRAHYDROZOLINE HYDROCHLORIDE
     Indication: Product used for unknown indication
  55. TOFACITINIB [Concomitant]
     Active Substance: TOFACITINIB
     Indication: Colitis ulcerative
     Route: 048
  56. AMLODIPINE BESYLATE [Concomitant]
     Active Substance: AMLODIPINE BESYLATE
     Indication: Product used for unknown indication
     Route: 065
  57. ATORVASTATIN CALCIUM [Concomitant]
     Active Substance: ATORVASTATIN CALCIUM
     Indication: Product used for unknown indication
     Route: 065
  58. BETNOVATE [Concomitant]
     Active Substance: BETAMETHASONE
     Indication: Product used for unknown indication
  59. BISOPROLOL [Concomitant]
     Active Substance: BISOPROLOL
     Indication: Product used for unknown indication
  60. CALCIUM CARBONATE\MAGNESIUM [Concomitant]
     Active Substance: CALCIUM CARBONATE\MAGNESIUM
     Indication: Product used for unknown indication
  61. CALCIUM CARBONATE\VITAMIN D [Concomitant]
     Active Substance: CALCIUM CARBONATE\VITAMIN D
     Indication: Product used for unknown indication
  62. CITALOPRAM HYDROCHLORIDE [Concomitant]
     Active Substance: CITALOPRAM HYDROCHLORIDE
     Indication: Ill-defined disorder
  63. DORZOLAMIDE HYDROCHLORIDE [Concomitant]
     Active Substance: DORZOLAMIDE HYDROCHLORIDE
     Indication: Product used for unknown indication
  64. CLOBETASONE BUTYRATE [Concomitant]
     Active Substance: CLOBETASONE BUTYRATE
     Indication: Product used for unknown indication
  65. EMPAGLIFLOZIN [Concomitant]
     Active Substance: EMPAGLIFLOZIN
     Indication: Product used for unknown indication
  66. FESOTERODINE FUMARATE [Concomitant]
     Active Substance: FESOTERODINE FUMARATE
     Indication: Product used for unknown indication
  67. FOLIC ACID [Concomitant]
     Active Substance: FOLIC ACID
     Indication: Product used for unknown indication
  68. LANSOPRAZOLE [Concomitant]
     Active Substance: LANSOPRAZOLE
     Indication: Product used for unknown indication
  69. LATANOPROST [Concomitant]
     Active Substance: LATANOPROST
     Indication: Product used for unknown indication
     Route: 065
  70. LYRICA [Concomitant]
     Active Substance: PREGABALIN
     Indication: Product used for unknown indication
  71. POLYETHYLENE GLYCOL 3350 [Concomitant]
     Active Substance: POLYETHYLENE GLYCOL 3350
     Indication: Product used for unknown indication
     Route: 065
  72. METHOTREXATE [Concomitant]
     Active Substance: METHOTREXATE
     Indication: Colitis ulcerative
     Route: 065
  73. NITROFURANTOIN [Concomitant]
     Active Substance: NITROFURANTOIN
     Indication: Product used for unknown indication
  74. MINERAL OIL EMULSION [Concomitant]
     Active Substance: MINERAL OIL EMULSION
     Indication: Ill-defined disorder
  75. RENNIE [Concomitant]
     Indication: Product used for unknown indication
  76. ZEROBASE [Concomitant]
     Indication: Product used for unknown indication
  77. CALCIUM\MAGNESIUM [Concomitant]
     Active Substance: CALCIUM\MAGNESIUM
     Indication: Product used for unknown indication
  78. CALCIUM\CHOLECALCIFEROL [Concomitant]
     Active Substance: CALCIUM\CHOLECALCIFEROL
  79. CALCIUM CARBONATE [Concomitant]
     Active Substance: CALCIUM CARBONATE
  80. NAPHAZOLINE HYDROCHLORIDE [Concomitant]
     Active Substance: NAPHAZOLINE HYDROCHLORIDE
  81. PRAVASTATIN SODIUM [Concomitant]
     Active Substance: PRAVASTATIN SODIUM
  82. SODIUM ALGINATE W/SODIUM BICARBONAT [Concomitant]
     Indication: Product used for unknown indication
  83. CALCIUM CARBONATE\VITAMIN D [Concomitant]
     Active Substance: CALCIUM CARBONATE\VITAMIN D
     Indication: Product used for unknown indication
  84. PREGABALIN [Concomitant]
     Active Substance: PREGABALIN
     Indication: Product used for unknown indication
  85. BETAMETHASONE VALERATE [Concomitant]
     Active Substance: BETAMETHASONE VALERATE
     Indication: Product used for unknown indication
  86. TOFACITINIB [Concomitant]
     Active Substance: TOFACITINIB
     Indication: Colitis ulcerative
     Route: 048
  87. EUMOVATE [Concomitant]
     Active Substance: CLOBETASONE BUTYRATE
  88. EMPAGLIFLOZIN [Concomitant]
     Active Substance: EMPAGLIFLOZIN
  89. ACETAMINOPHEN AND CODEINE [Concomitant]
     Active Substance: ACETAMINOPHEN\CODEINE PHOSPHATE
  90. PEDIAPRED [Suspect]
     Active Substance: PREDNISOLONE SODIUM PHOSPHATE
     Indication: Product used for unknown indication
  91. PEDIAPRED [Suspect]
     Active Substance: PREDNISOLONE SODIUM PHOSPHATE
     Indication: Product used for unknown indication
  92. PREDNISONE [Suspect]
     Active Substance: PREDNISONE
     Indication: Colitis ulcerative
     Route: 065
  93. PREDNISONE [Suspect]
     Active Substance: PREDNISONE
     Indication: Colitis ulcerative
     Route: 065
  94. PREDNISONE [Suspect]
     Active Substance: PREDNISONE
     Indication: Colitis ulcerative
     Route: 065
  95. SULFASALAZINE [Suspect]
     Active Substance: SULFASALAZINE
     Indication: Colitis ulcerative
     Route: 065
  96. SULFASALAZINE [Suspect]
     Active Substance: SULFASALAZINE
     Indication: Colitis ulcerative
     Route: 065
  97. SULFASALAZINE [Suspect]
     Active Substance: SULFASALAZINE
     Indication: Colitis ulcerative
     Route: 065
  98. SULFASALAZINE [Suspect]
     Active Substance: SULFASALAZINE
     Indication: Colitis ulcerative
     Route: 048
  99. SULFASALAZINE [Suspect]
     Active Substance: SULFASALAZINE
     Indication: Colitis ulcerative
     Route: 065
  100. BUDESONIDE [Suspect]
     Active Substance: BUDESONIDE
     Indication: Colitis ulcerative
     Route: 048
  101. ASACOL [Suspect]
     Active Substance: MESALAMINE
     Indication: Colitis ulcerative
  102. ASACOL [Suspect]
     Active Substance: MESALAMINE
     Indication: Colitis ulcerative
  103. ASACOL [Suspect]
     Active Substance: MESALAMINE
     Indication: Colitis ulcerative
  104. ASACOL [Suspect]
     Active Substance: MESALAMINE
     Indication: Colitis ulcerative
  105. ASACOL [Suspect]
     Active Substance: MESALAMINE
     Indication: Colitis ulcerative
     Route: 048
  106. ASACOL [Suspect]
     Active Substance: MESALAMINE
     Indication: Colitis ulcerative
  107. ASACOL [Suspect]
     Active Substance: MESALAMINE
     Indication: Colitis ulcerative
  108. SULFASALAZINE [Suspect]
     Active Substance: SULFASALAZINE
     Indication: Colitis ulcerative
     Route: 048
  109. PREDNISONE [Suspect]
     Active Substance: PREDNISONE
     Indication: Colitis ulcerative
     Route: 065
  110. PREDNISONE [Suspect]
     Active Substance: PREDNISONE
     Indication: Colitis ulcerative
     Route: 065
  111. OMEPRAZOLE [Suspect]
     Active Substance: OMEPRAZOLE
     Indication: Gastritis
     Route: 065
  112. MESALAMINE [Suspect]
     Active Substance: MESALAMINE
     Indication: Colitis ulcerative
     Route: 048
  113. MESALAMINE [Suspect]
     Active Substance: MESALAMINE
     Indication: Colitis ulcerative
     Route: 048
  114. MESALAMINE [Suspect]
     Active Substance: MESALAMINE
     Indication: Colitis ulcerative
     Route: 048
  115. MESALAMINE [Suspect]
     Active Substance: MESALAMINE
     Indication: Colitis ulcerative
  116. MESALAMINE [Suspect]
     Active Substance: MESALAMINE
     Indication: Colitis ulcerative
  117. HYDROCORTISONE [Suspect]
     Active Substance: HYDROCORTISONE
     Indication: Colitis ulcerative
     Route: 048
  118. HUMIRA [Suspect]
     Active Substance: ADALIMUMAB
     Indication: Colitis ulcerative
  119. CORTIFOAM [Suspect]
     Active Substance: HYDROCORTISONE ACETATE
     Indication: Deep vein thrombosis
     Route: 048
  120. CORTIFOAM [Suspect]
     Active Substance: HYDROCORTISONE ACETATE
     Indication: Deep vein thrombosis
     Route: 048
  121. BUDESONIDE [Suspect]
     Active Substance: BUDESONIDE
     Indication: Colitis ulcerative
     Route: 048
  122. ASACOL [Suspect]
     Active Substance: MESALAMINE
     Indication: Colitis ulcerative
  123. ASACOL [Suspect]
     Active Substance: MESALAMINE
     Indication: Colitis ulcerative
  124. ADALIMUMAB [Suspect]
     Active Substance: ADALIMUMAB
     Indication: Crohn^s disease
     Route: 048
  125. ADALIMUMAB [Suspect]
     Active Substance: ADALIMUMAB
     Indication: Crohn^s disease
     Route: 048
  126. ADALIMUMAB [Suspect]
     Active Substance: ADALIMUMAB
     Indication: Crohn^s disease
  127. ASACOL [Suspect]
     Active Substance: MESALAMINE
     Indication: Colitis ulcerative
     Route: 065
  128. ASACOL [Suspect]
     Active Substance: MESALAMINE
     Indication: Colitis ulcerative
     Route: 065
  129. ASACOL [Suspect]
     Active Substance: MESALAMINE
     Indication: Colitis ulcerative
     Route: 065
  130. WARFARIN SODIUM [Suspect]
     Active Substance: WARFARIN SODIUM
     Indication: Deep vein thrombosis
     Route: 048
  131. WARFARIN SODIUM [Suspect]
     Active Substance: WARFARIN SODIUM
     Indication: Deep vein thrombosis
     Route: 048
  132. WARFARIN SODIUM [Suspect]
     Active Substance: WARFARIN SODIUM
     Indication: Deep vein thrombosis
     Route: 048
  133. WARFARIN SODIUM [Suspect]
     Active Substance: WARFARIN SODIUM
     Indication: Deep vein thrombosis
     Route: 065
  134. METHOTREXATE [Concomitant]
     Active Substance: METHOTREXATE
     Indication: Colitis ulcerative
     Route: 065
  135. METHOTREXATE [Concomitant]
     Active Substance: METHOTREXATE
     Indication: Colitis ulcerative
     Route: 065
  136. MESALAMINE [Suspect]
     Active Substance: MESALAMINE
     Indication: Colitis ulcerative
     Route: 065
  137. MESALAMINE [Suspect]
     Active Substance: MESALAMINE
     Indication: Colitis ulcerative
     Route: 048
  138. MESALAMINE [Suspect]
     Active Substance: MESALAMINE
     Indication: Colitis ulcerative
     Route: 065
  139. MESALAMINE [Suspect]
     Active Substance: MESALAMINE
     Indication: Colitis ulcerative
     Route: 065
  140. MESALAMINE [Suspect]
     Active Substance: MESALAMINE
     Indication: Colitis ulcerative
     Route: 048
  141. MESALAMINE [Suspect]
     Active Substance: MESALAMINE
     Indication: Colitis ulcerative
     Route: 048
  142. MESALAMINE [Suspect]
     Active Substance: MESALAMINE
     Indication: Colitis ulcerative
     Route: 065
  143. MESALAMINE [Suspect]
     Active Substance: MESALAMINE
     Indication: Colitis ulcerative
  144. MESALAMINE [Suspect]
     Active Substance: MESALAMINE
     Indication: Colitis ulcerative
     Route: 048
  145. MESALAMINE [Suspect]
     Active Substance: MESALAMINE
     Indication: Colitis ulcerative
     Route: 065
  146. MESALAMINE [Suspect]
     Active Substance: MESALAMINE
     Indication: Colitis ulcerative
     Route: 065
  147. MESALAMINE [Suspect]
     Active Substance: MESALAMINE
     Indication: Colitis ulcerative
     Route: 065
  148. MESALAMINE [Suspect]
     Active Substance: MESALAMINE
     Indication: Colitis ulcerative
     Route: 065
  149. MESALAMINE [Suspect]
     Active Substance: MESALAMINE
     Indication: Colitis ulcerative
     Route: 065
  150. MESALAMINE [Suspect]
     Active Substance: MESALAMINE
     Indication: Colitis ulcerative
     Route: 065
  151. MESALAMINE [Suspect]
     Active Substance: MESALAMINE
     Indication: Colitis ulcerative
     Route: 065
  152. MESALAMINE [Suspect]
     Active Substance: MESALAMINE
     Indication: Colitis ulcerative
     Route: 065
  153. MESALAMINE [Suspect]
     Active Substance: MESALAMINE
     Indication: Colitis ulcerative
     Route: 048
  154. MESALAMINE [Suspect]
     Active Substance: MESALAMINE
     Indication: Colitis ulcerative
     Route: 065
  155. LATANOPROST [Concomitant]
     Active Substance: LATANOPROST
     Indication: Product used for unknown indication
     Route: 065
  156. INFLIXIMAB [Suspect]
     Active Substance: INFLIXIMAB
     Indication: Colitis ulcerative
     Route: 065
  157. HYDROCORTISONE [Suspect]
     Active Substance: HYDROCORTISONE
     Indication: Colitis ulcerative
     Route: 048
  158. HYDROCORTISONE [Suspect]
     Active Substance: HYDROCORTISONE
     Indication: Colitis ulcerative
     Route: 048
  159. VEDOLIZUMAB [Suspect]
     Active Substance: VEDOLIZUMAB
     Indication: Deep vein thrombosis
  160. VEDOLIZUMAB [Suspect]
     Active Substance: VEDOLIZUMAB
     Indication: Deep vein thrombosis
  161. VEDOLIZUMAB [Suspect]
     Active Substance: VEDOLIZUMAB
     Indication: Deep vein thrombosis
  162. VEDOLIZUMAB [Suspect]
     Active Substance: VEDOLIZUMAB
     Indication: Deep vein thrombosis
     Route: 042
  163. VEDOLIZUMAB [Suspect]
     Active Substance: VEDOLIZUMAB
     Indication: Deep vein thrombosis
  164. CORTISONE [Suspect]
     Active Substance: CORTISONE
     Indication: Crohn^s disease
     Route: 048
  165. CORTIFOAM [Suspect]
     Active Substance: HYDROCORTISONE ACETATE
     Indication: Deep vein thrombosis
     Route: 065
  166. CORTIFOAM [Suspect]
     Active Substance: HYDROCORTISONE ACETATE
     Indication: Deep vein thrombosis
     Route: 048
  167. CORTIFOAM [Suspect]
     Active Substance: HYDROCORTISONE ACETATE
     Indication: Deep vein thrombosis
     Route: 048
  168. CORTIFOAM [Suspect]
     Active Substance: HYDROCORTISONE ACETATE
     Indication: Deep vein thrombosis
     Route: 048
  169. CORTIFOAM [Suspect]
     Active Substance: HYDROCORTISONE ACETATE
     Indication: Deep vein thrombosis
     Route: 048
  170. COVID-19 VACCINE NOS [Suspect]
     Active Substance: COVID-19 VACCINE
     Indication: COVID-19 immunisation
     Route: 065
  171. COVID-19 VACCINE NOS [Suspect]
     Active Substance: COVID-19 VACCINE
     Indication: COVID-19 immunisation
     Route: 065
  172. COVID-19 VACCINE NOS [Suspect]
     Active Substance: COVID-19 VACCINE
     Indication: COVID-19 immunisation
     Route: 065
  173. BUDESONIDE [Suspect]
     Active Substance: BUDESONIDE
     Indication: Colitis ulcerative
     Route: 048
  174. BUDESONIDE [Suspect]
     Active Substance: BUDESONIDE
     Indication: Colitis ulcerative
     Route: 065
  175. ALBENDAZOLE [Suspect]
     Active Substance: ALBENDAZOLE
     Indication: Deep vein thrombosis
     Route: 042
  176. ADALIMUMAB [Suspect]
     Active Substance: ADALIMUMAB
     Indication: Crohn^s disease
     Route: 042
  177. ADALIMUMAB [Suspect]
     Active Substance: ADALIMUMAB
     Indication: Crohn^s disease
     Route: 048
  178. ADALIMUMAB [Suspect]
     Active Substance: ADALIMUMAB
     Indication: Crohn^s disease
     Route: 058
  179. ASACOL [Suspect]
     Active Substance: MESALAMINE
     Indication: Colitis ulcerative
     Route: 065
  180. CORTIFOAM [Suspect]
     Active Substance: HYDROCORTISONE ACETATE
     Indication: Deep vein thrombosis
  181. DESOXIMETASONE [Suspect]
     Active Substance: DESOXIMETASONE
     Indication: Crohn^s disease
  182. DESOXIMETASONE [Suspect]
     Active Substance: DESOXIMETASONE
     Indication: Crohn^s disease
  183. DESOXIMETASONE [Suspect]
     Active Substance: DESOXIMETASONE
     Indication: Crohn^s disease
  184. MESALAMINE [Suspect]
     Active Substance: MESALAMINE
     Indication: Colitis ulcerative
     Route: 048
  185. SULFASALAZINE [Suspect]
     Active Substance: SULFASALAZINE
     Indication: Colitis ulcerative
     Route: 065
  186. ASACOL [Suspect]
     Active Substance: MESALAMINE
     Indication: Colitis ulcerative
  187. ASACOL [Suspect]
     Active Substance: MESALAMINE
     Indication: Colitis ulcerative
  188. GABAPENTIN [Suspect]
     Active Substance: GABAPENTIN
     Indication: Product used for unknown indication
  189. GABAPENTIN [Suspect]
     Active Substance: GABAPENTIN
     Indication: Product used for unknown indication
  190. HYDROCORTISONE [Suspect]
     Active Substance: HYDROCORTISONE
     Indication: Colitis ulcerative
     Route: 048
  191. HYDROCORTISONE [Suspect]
     Active Substance: HYDROCORTISONE
     Indication: Colitis ulcerative
  192. HYDROCORTISONE [Suspect]
     Active Substance: HYDROCORTISONE
     Indication: Colitis ulcerative
     Route: 048
  193. FELODIPINE [Suspect]
     Active Substance: FELODIPINE
     Indication: Hypertension
     Route: 048
  194. HYDROCORTISONE [Suspect]
     Active Substance: HYDROCORTISONE
     Indication: Colitis ulcerative
  195. HYDROCORTISONE [Suspect]
     Active Substance: HYDROCORTISONE
     Indication: Colitis ulcerative
  196. HYDROCORTISONE [Suspect]
     Active Substance: HYDROCORTISONE
     Indication: Colitis ulcerative
  197. REMICADE [Suspect]
     Active Substance: INFLIXIMAB
     Indication: Colitis ulcerative
  198. TOFACITINIB [Concomitant]
     Active Substance: TOFACITINIB
     Indication: Colitis ulcerative
  199. TOFACITINIB [Concomitant]
     Active Substance: TOFACITINIB
     Indication: Colitis ulcerative
     Route: 048
  200. PULMICORT TURBUHALER [Suspect]
     Active Substance: BUDESONIDE
     Indication: Colitis ulcerative
     Route: 048
  201. PULMICORT TURBUHALER [Suspect]
     Active Substance: BUDESONIDE
     Indication: Colitis ulcerative
     Route: 048
  202. CORTISONE [Suspect]
     Active Substance: CORTISONE
     Indication: Crohn^s disease
     Route: 048
  203. CORTISONE [Suspect]
     Active Substance: CORTISONE
     Indication: Crohn^s disease
     Route: 048
  204. CORTISONE [Suspect]
     Active Substance: CORTISONE
     Indication: Crohn^s disease
     Route: 048
  205. HYDROCORTISONE [Suspect]
     Active Substance: HYDROCORTISONE
     Indication: Colitis ulcerative
     Route: 065
  206. HYDROCORTISONE [Suspect]
     Active Substance: HYDROCORTISONE
     Indication: Colitis ulcerative
     Route: 065
  207. HYDROCORTISONE [Suspect]
     Active Substance: HYDROCORTISONE
     Indication: Colitis ulcerative
     Route: 065
  208. INFLIXIMAB [Suspect]
     Active Substance: INFLIXIMAB
     Indication: Colitis ulcerative
     Route: 042
  209. INFLIXIMAB [Suspect]
     Active Substance: INFLIXIMAB
     Indication: Colitis ulcerative
     Route: 042
  210. INFLIXIMAB [Suspect]
     Active Substance: INFLIXIMAB
     Indication: Colitis ulcerative
     Route: 042
  211. METHOTREXATE [Concomitant]
     Active Substance: METHOTREXATE
     Indication: Colitis ulcerative
     Route: 065

REACTIONS (53)
  - Abdominal discomfort [Not Recovered/Not Resolved]
  - Accidental overdose [Not Recovered/Not Resolved]
  - Arthritis [Not Recovered/Not Resolved]
  - Bronchiectasis [Not Recovered/Not Resolved]
  - Burns second degree [Not Recovered/Not Resolved]
  - Cardiac murmur [Not Recovered/Not Resolved]
  - Catarrh [Not Recovered/Not Resolved]
  - Cerebrovascular accident [Not Recovered/Not Resolved]
  - Colitis ulcerative [Not Recovered/Not Resolved]
  - Condition aggravated [Not Recovered/Not Resolved]
  - Confusional state [Not Recovered/Not Resolved]
  - COVID-19 [Not Recovered/Not Resolved]
  - Deep vein thrombosis [Not Recovered/Not Resolved]
  - Depression [Not Recovered/Not Resolved]
  - Drug ineffective [Not Recovered/Not Resolved]
  - Dysgeusia [Not Recovered/Not Resolved]
  - Eczema [Not Recovered/Not Resolved]
  - Fatigue [Not Recovered/Not Resolved]
  - Frequent bowel movements [Not Recovered/Not Resolved]
  - Gingival pain [Not Recovered/Not Resolved]
  - Haematochezia [Not Recovered/Not Resolved]
  - Headache [Not Recovered/Not Resolved]
  - Hypopnoea [Not Recovered/Not Resolved]
  - Impaired work ability [Not Recovered/Not Resolved]
  - Inappropriate schedule of product administration [Not Recovered/Not Resolved]
  - Intentional product use issue [Not Recovered/Not Resolved]
  - Loss of personal independence in daily activities [Not Recovered/Not Resolved]
  - Medication error [Not Recovered/Not Resolved]
  - Migraine [Not Recovered/Not Resolved]
  - Nightmare [Not Recovered/Not Resolved]
  - Pain [Not Recovered/Not Resolved]
  - Pain in extremity [Not Recovered/Not Resolved]
  - Palpitations [Not Recovered/Not Resolved]
  - Parosmia [Not Recovered/Not Resolved]
  - Pulmonary embolism [Not Recovered/Not Resolved]
  - Pyrexia [Not Recovered/Not Resolved]
  - Rash [Not Recovered/Not Resolved]
  - Rectal haemorrhage [Not Recovered/Not Resolved]
  - Rhinitis [Not Recovered/Not Resolved]
  - Somnolence [Not Recovered/Not Resolved]
  - Steroid dependence [Not Recovered/Not Resolved]
  - Stress [Not Recovered/Not Resolved]
  - Swollen tongue [Not Recovered/Not Resolved]
  - Systemic lupus erythematosus [Not Recovered/Not Resolved]
  - Tinnitus [Not Recovered/Not Resolved]
  - Tubulointerstitial nephritis [Not Recovered/Not Resolved]
  - Vertigo [Not Recovered/Not Resolved]
  - Weight decreased [Not Recovered/Not Resolved]
  - Adverse drug reaction [Not Recovered/Not Resolved]
  - Alcohol poisoning [Not Recovered/Not Resolved]
  - Impaired quality of life [Not Recovered/Not Resolved]
  - Product use in unapproved indication [Not Recovered/Not Resolved]
  - Off label use [Not Recovered/Not Resolved]
